FAERS Safety Report 7544101-8 (Version None)
Quarter: 2011Q2

REPORT INFORMATION
  Report Type: 
  Country: None (occurrence: None)
  Receive Date: 20110613
  Receipt Date: 20051025
  Transmission Date: 20111010
  Serious: Yes (Other)
  Sender: FDA-Public Use
  Company Number: PHNR2005AU01518

PATIENT
  Sex: Male

DRUGS (1)
  1. CLOZAPINE [Suspect]
     Indication: SCHIZOPHRENIA
     Dosage: 0 - 500 MG/DAY
     Dates: start: 20010329

REACTIONS (5)
  - TRI-IODOTHYRONINE INCREASED [None]
  - THYROID FUNCTION TEST ABNORMAL [None]
  - BLOOD THYROID STIMULATING HORMONE DECREASED [None]
  - THYROIDITIS [None]
  - THYROTOXIC CRISIS [None]
